FAERS Safety Report 6375547-1 (Version None)
Quarter: 2009Q3

REPORT INFORMATION
  Report Type: 
  Country: None (occurrence: None)
  Receive Date: 20090917
  Receipt Date: 20090917
  Transmission Date: 20100115
  Serious: Yes (Other)
  Sender: FDA-Public Use
  Company Number: None

PATIENT
  Sex: Male
  Weight: 61.3 kg

DRUGS (11)
  1. DECITABINE 50MG VIAL [Suspect]
     Indication: CHRONIC MYELOMONOCYTIC LEUKAEMIA
     Dosage: 33.6MG DAILY IV BOLUS
     Route: 040
     Dates: start: 20090622, end: 20090821
  2. PREDNISOLONE ACETATE -PRED FORTE- [Concomitant]
  3. ATROPINE -ISOPTO ATROPINE- [Concomitant]
  4. PREDNISONE -DELTASONE- [Concomitant]
  5. CARBOXYMETHYLCELLULOSE SODIUM -HYDROXYPROPYL METHYLCELLULOSE- [Concomitant]
  6. FISH OIL -MAXEPA- [Concomitant]
  7. FLUTICASONE -FLOVENT- [Concomitant]
  8. DOCUSATE SODIUM -COLACE- [Concomitant]
  9. NORVASC [Concomitant]
  10. ALBUTEROL -VENTOLIN HFA; PROVENTIL HFA; PROAIR [Concomitant]
  11. ZYLOPRIM [Concomitant]

REACTIONS (4)
  - EYE INFECTION [None]
  - OCULAR HYPERAEMIA [None]
  - UVEITIS [None]
  - WHITE BLOOD CELL COUNT INCREASED [None]
